FAERS Safety Report 11175614 (Version 2)
Quarter: 2015Q2

REPORT INFORMATION
  Report Type: Spontaneous
  Country: JP (occurrence: JP)
  Receive Date: 20150609
  Receipt Date: 20150623
  Transmission Date: 20150821
  Serious: Yes (Other)
  Sender: FDA-Public Use
  Company Number: JP-GLAXOSMITHKLINE INC.-JP2015JPN078222

PATIENT
  Age: 61 Year
  Sex: Female

DRUGS (6)
  1. CISDYNE [Concomitant]
     Active Substance: CARBOCYSTEINE
     Dosage: 500 MG, TID
     Dates: start: 20150601, end: 20150602
  2. CLARITHROMYCIN. [Concomitant]
     Active Substance: CLARITHROMYCIN
     Dosage: 200 MG, BID
     Dates: start: 20150601, end: 20150602
  3. MUCODYNE [Concomitant]
     Active Substance: CARBOCYSTEINE
  4. ALLERMIST [Suspect]
     Active Substance: FLUTICASONE FUROATE
     Indication: RHINITIS ALLERGIC
     Dosage: 110 ?G, QD
     Route: 045
     Dates: start: 20150601, end: 20150602
  5. ALLELOCK [Concomitant]
     Active Substance: OLOPATADINE HYDROCHLORIDE
     Indication: RHINITIS ALLERGIC
     Dosage: 5 MG, BID
     Dates: start: 20150601, end: 20150602
  6. MICAMLO [Concomitant]
     Active Substance: AMLODIPINE BESYLATE\TELMISARTAN
     Indication: HYPERTENSION
     Dosage: 1 DF, QD

REACTIONS (7)
  - Dizziness [Recovered/Resolved]
  - Sweat gland disorder [Unknown]
  - Muscular weakness [Recovered/Resolved]
  - Thirst [Recovered/Resolved]
  - Palpitations [Unknown]
  - Shock [Recovered/Resolved]
  - Pyrexia [Unknown]

NARRATIVE: CASE EVENT DATE: 20150602
